FAERS Safety Report 10932121 (Version 1)
Quarter: 2015Q1

REPORT INFORMATION
  Report Type: Spontaneous
  Country: US (occurrence: None)
  Receive Date: 20150225
  Receipt Date: 20150225
  Transmission Date: 20150721
  Serious: Yes (Hospitalization)
  Sender: FDA-Public Use
  Company Number: 2014-US-007600

PATIENT
  Age: 79 Year
  Sex: Male

DRUGS (6)
  1. BACLOFEN (BACLOFEN) INJECTION [Suspect]
     Active Substance: BACLOFEN
     Indication: PAIN
     Route: 037
  2. PRIALT [Suspect]
     Active Substance: ZICONOTIDE ACETATE
     Indication: PAIN
  3. FENTANYL (FENTANYL CITRATE) INJECTION [Suspect]
     Active Substance: FENTANYL
     Indication: PAIN
     Route: 037
  4. FENTANYL (FENTANYL CITRATE) INJECTION [Suspect]
     Active Substance: FENTANYL
     Indication: POST LAMINECTOMY SYNDROME
     Route: 037
  5. BACLOFEN (BACLOFEN) INJECTION [Suspect]
     Active Substance: BACLOFEN
     Indication: POST LAMINECTOMY SYNDROME
     Route: 037
  6. PRIALT [Suspect]
     Active Substance: ZICONOTIDE ACETATE
     Indication: POST LAMINECTOMY SYNDROME

REACTIONS (2)
  - Loss of consciousness [None]
  - Device issue [None]

NARRATIVE: CASE EVENT DATE: 20140506
